FAERS Safety Report 8900693 (Version 1)
Quarter: 2012Q4

REPORT INFORMATION
  Report Type: 
  Country: CA (occurrence: CA)
  Receive Date: 20121109
  Receipt Date: 20121109
  Transmission Date: 20130627
  Serious: Yes (Other)
  Sender: FDA-Public Use
  Company Number: PHMT2006CA01473

PATIENT
  Sex: Male

DRUGS (5)
  1. SANDOSTATIN LAR [Suspect]
     Indication: CARCINOID TUMOUR
     Dosage: 60 mg, every 4 weeks
     Dates: start: 20020702
  2. AGGRENOX [Concomitant]
  3. ALLOPURINOL [Concomitant]
  4. COZAAR [Concomitant]
  5. HYDROCHLOROTHIAZIDE [Concomitant]

REACTIONS (16)
  - Serum serotonin increased [Unknown]
  - Prostatic specific antigen abnormal [Unknown]
  - Injection site pain [Unknown]
  - Epistaxis [Unknown]
  - Muscle spasms [Unknown]
  - Dyspnoea exertional [Unknown]
  - Chest pain [Unknown]
  - Tremor [Unknown]
  - Pain [Unknown]
  - Joint range of motion decreased [Unknown]
  - Skin disorder [Unknown]
  - Oedema peripheral [Unknown]
  - Carpal tunnel syndrome [Unknown]
  - Pain in extremity [Unknown]
  - Arthralgia [Unknown]
  - Neck pain [Unknown]
